FAERS Safety Report 6751844-2 (Version None)
Quarter: 2010Q2

REPORT INFORMATION
  Report Type: 
  Country: None (occurrence: None)
  Receive Date: 20100602
  Receipt Date: 20100602
  Transmission Date: 20101027
  Serious: Yes (Other)
  Sender: FDA-Public Use
  Company Number: None

PATIENT
  Age: 13 Month
  Sex: Female
  Weight: 10.4826 kg

DRUGS (1)
  1. CONCENTRATED TYLENOL INFANT DROPS [Suspect]
     Indication: ABNORMAL BEHAVIOUR
     Dosage: 1.2ML QID ORALLY
     Route: 048
     Dates: start: 20100427, end: 20100502

REACTIONS (5)
  - DIARRHOEA [None]
  - GASTROENTERITIS VIRAL [None]
  - HAEMORRHAGE [None]
  - MUCOUS MEMBRANE DISORDER [None]
  - VOMITING [None]
